FAERS Safety Report 23738218 (Version 1)
Quarter: 2024Q2

REPORT INFORMATION
  Report Type: Spontaneous
  Country: US (occurrence: US)
  Receive Date: 20240412
  Receipt Date: 20240412
  Transmission Date: 20240716
  Serious: Yes (Hospitalization, Other)
  Sender: FDA-Public Use
  Company Number: US-UNITED THERAPEUTICS-UNT-2024-006358

PATIENT
  Age: 38 Year
  Sex: Female

DRUGS (3)
  1. REMODULIN [Suspect]
     Active Substance: TREPROSTINIL
     Indication: Pulmonary arterial hypertension
     Dosage: 0.02381 ?G/KG, CONTINUING
     Route: 058
  2. REMODULIN [Suspect]
     Active Substance: TREPROSTINIL
     Dosage: UNK, CONTINUING
     Route: 058
     Dates: start: 202304
  3. AMBRISENTAN [Concomitant]
     Active Substance: AMBRISENTAN
     Indication: Product used for unknown indication
     Dosage: UNK
     Route: 065

REACTIONS (12)
  - Urinary tract infection [Unknown]
  - Infusion site thrombosis [Unknown]
  - Infusion site pain [Not Recovered/Not Resolved]
  - Renal disorder [Unknown]
  - Dyspnoea [Recovered/Resolved]
  - Infusion site erythema [Recovered/Resolved]
  - Infusion site warmth [Recovered/Resolved]
  - Infusion site mass [Not Recovered/Not Resolved]
  - Infusion site bruising [Unknown]
  - Infusion site discomfort [Unknown]
  - Infusion site haemorrhage [Unknown]
  - Infusion site infection [Unknown]

NARRATIVE: CASE EVENT DATE: 20240201
